FAERS Safety Report 8094243-6 (Version None)
Quarter: 2012Q1

REPORT INFORMATION
  Report Type: 
  Country: None (occurrence: None)
  Receive Date: 20120131
  Receipt Date: 20120124
  Transmission Date: 20120608
  Serious: Yes (Other)
  Sender: FDA-Public Use
  Company Number: JP-PFIZER INC-2012020031

PATIENT
  Sex: Male

DRUGS (5)
  1. METHYCOBAL [Concomitant]
     Dosage: UNK
     Route: 048
  2. LYRICA [Suspect]
     Dosage: 150 MG, 2X/DAY
     Route: 048
     Dates: start: 20110820
  3. VITAMIN PREPARATION COMPOUND [Concomitant]
     Dosage: UNK
     Route: 048
  4. TEGRETOL [Concomitant]
     Dosage: UNK
     Route: 048
  5. LYRICA [Suspect]
     Indication: HYPOAESTHESIA
     Dosage: 75 MG, 2X/DAY
     Route: 048
     Dates: start: 20110528, end: 20110820

REACTIONS (2)
  - ROAD TRAFFIC ACCIDENT [None]
  - LOSS OF CONSCIOUSNESS [None]
